FAERS Safety Report 17784258 (Version 10)
Quarter: 2021Q4

REPORT INFORMATION
  Report Type: Report from Study
  Country: DE (occurrence: DE)
  Receive Date: 20200514
  Receipt Date: 20211208
  Transmission Date: 20220303
  Serious: Yes (Hospitalization, Other)
  Sender: FDA-Public Use
  Company Number: DE-BRISTOL-MYERS SQUIBB COMPANY-BMS-2020-037129

PATIENT
  Age: 77 Year
  Sex: Male
  Weight: 65 kg

DRUGS (4)
  1. NIVOLUMAB [Suspect]
     Active Substance: NIVOLUMAB
     Indication: Malignant melanoma
     Dosage: 64.0 MILLIGRAM, Q3WK
     Route: 042
     Dates: start: 20191217, end: 20200129
  2. NIVOLUMAB [Suspect]
     Active Substance: NIVOLUMAB
     Dosage: 240 MILLIGRAM, Q3WK
     Route: 042
     Dates: start: 20200330, end: 20200511
  3. IPILIMUMAB [Suspect]
     Active Substance: IPILIMUMAB
     Indication: Malignant melanoma
     Dosage: 192.0 MILLIGRAM, Q3WK
     Route: 042
     Dates: start: 20191217, end: 20200129
  4. HARNSTOFF [Concomitant]
     Indication: Product used for unknown indication
     Route: 065

REACTIONS (21)
  - Hyponatraemia [Recovered/Resolved]
  - Pneumonia [Recovered/Resolved]
  - Colitis [Recovered/Resolved]
  - Syncope [Recovered/Resolved]
  - Fatigue [Recovered/Resolved]
  - Oedema peripheral [Unknown]
  - Metabolic disorder [Recovered/Resolved]
  - Malnutrition [Recovered/Resolved]
  - Pruritus [Recovered/Resolved]
  - Macule [Unknown]
  - Depression [Unknown]
  - Rosacea [Recovering/Resolving]
  - Anaemia [Recovering/Resolving]
  - Pyrexia [Recovered/Resolved]
  - Chills [Unknown]
  - Decreased appetite [Recovered/Resolved]
  - Vertigo [Recovered/Resolved]
  - Hyperglycaemia [Unknown]
  - Thrombocytosis [Unknown]
  - Off label use [Unknown]
  - Prescribed underdose [Unknown]

NARRATIVE: CASE EVENT DATE: 20191220
